FAERS Safety Report 5633155-1 (Version None)
Quarter: 2008Q1

REPORT INFORMATION
  Report Type: 
  Country: None (occurrence: None)
  Receive Date: 20080221
  Receipt Date: 20080208
  Transmission Date: 20080703
  Serious: Yes (Hospitalization)
  Sender: FDA-Public Use
  Company Number: DE-ASTRAZENECA-2008PK00285

PATIENT
  Age: 47 Year
  Sex: Female

DRUGS (5)
  1. SEROQUEL [Suspect]
     Route: 048
     Dates: start: 20070906, end: 20070908
  2. SEROQUEL [Suspect]
     Route: 048
     Dates: start: 20070909, end: 20070909
  3. VALPROATE SODIUM [Suspect]
     Route: 048
     Dates: end: 20070909
  4. CIPRALEX [Concomitant]
     Route: 048
     Dates: end: 20070909
  5. BELOC ZOK [Concomitant]
     Route: 048

REACTIONS (4)
  - ACCIDENTAL OVERDOSE [None]
  - HEPATIC ENZYME INCREASED [None]
  - HEPATIC STEATOSIS [None]
  - HEPATOCELLULAR INJURY [None]
